FAERS Safety Report 9670576 (Version 3)
Quarter: 2014Q1

REPORT INFORMATION
  Report Type: Spontaneous
  Country: US (occurrence: US)
  Receive Date: 20131106
  Receipt Date: 20140213
  Transmission Date: 20141002
  Serious: No
  Sender: FDA-Public Use
  Company Number: US-BIOGENIDEC-2013BI104185

PATIENT
  Age: 45 Year
  Sex: Female

DRUGS (2)
  1. TYSABRI [Suspect]
     Indication: MULTIPLE SCLEROSIS
     Route: 042
     Dates: start: 20131017
  2. TECFIDERA [Concomitant]
     Indication: MULTIPLE SCLEROSIS
     Route: 048

REACTIONS (9)
  - Visual impairment [Recovered/Resolved]
  - Sensation of heaviness [Unknown]
  - Refraction disorder [Unknown]
  - Sensory disturbance [Unknown]
  - Corneal disorder [Recovered/Resolved]
  - Astigmatism [Unknown]
  - Nuclear magnetic resonance imaging abnormal [Not Recovered/Not Resolved]
  - Eye disorder [Unknown]
  - Fatigue [Not Recovered/Not Resolved]
